FAERS Safety Report 6137649-4 (Version None)
Quarter: 2009Q1

REPORT INFORMATION
  Report Type: 
  Country: None (occurrence: None)
  Receive Date: 20090327
  Receipt Date: 20090327
  Transmission Date: 20090719
  Serious: Yes (Other)
  Sender: FDA-Public Use
  Company Number: None

PATIENT
  Age: 33 Year
  Sex: Female
  Weight: 96.1626 kg

DRUGS (1)
  1. INFUVITE ADULT [Suspect]
     Indication: GASTRIC BYPASS
     Dosage: 10ML AND TPN IV QD
     Route: 042
     Dates: start: 20090313

REACTIONS (4)
  - CHEST DISCOMFORT [None]
  - PRURITUS [None]
  - SKIN REACTION [None]
  - URTICARIA [None]
